FAERS Safety Report 6629666-2 (Version None)
Quarter: 2010Q1

REPORT INFORMATION
  Report Type: 
  Country: None (occurrence: None)
  Receive Date: 20100310
  Receipt Date: 20100310
  Transmission Date: 20100710
  Serious: Yes (Life-Threatening)
  Sender: FDA-Public Use
  Company Number: None

PATIENT
  Age: 4 Year
  Sex: Male
  Weight: 20 kg

DRUGS (1)
  1. MEGESTROL ACETATE [Suspect]
     Indication: FAILURE TO THRIVE

REACTIONS (6)
  - ADRENAL INSUFFICIENCY [None]
  - BACTERIAL TEST POSITIVE [None]
  - HYPOTENSION [None]
  - PNEUMONIA [None]
  - SHOCK [None]
  - STREPTOCOCCAL INFECTION [None]
